FAERS Safety Report 16330142 (Version 1)
Quarter: 2019Q2

REPORT INFORMATION
  Report Type: Spontaneous
  Country: NL (occurrence: NL)
  Receive Date: 20190520
  Receipt Date: 20190520
  Transmission Date: 20190711
  Serious: Yes (Other)
  Sender: FDA-Public Use
  Company Number: NL-SUN PHARMACEUTICAL INDUSTRIES LTD-2019RR-208180

PATIENT
  Age: 71 Year
  Sex: Male
  Weight: 95 kg

DRUGS (11)
  1. TAMSULOS HCI  RE 0.4MG  ACTAVISTAMSULOSINE HCL A RETARD CAPSULE MGA [Concomitant]
     Indication: PRODUCT USED FOR UNKNOWN INDICATION
     Dosage: 1 TABLET S MIDDAGS : 1200 UUR
     Route: 065
  2. BUMETANIDE 1 MGBUMETANIDE TABLET 1MG [Concomitant]
     Indication: PRODUCT USED FOR UNKNOWN INDICATION
     Dosage: 1TABLET  S MORGENS: 8.00 UUR
     Route: 065
  3. ESOMEPRAZOL SUN [Suspect]
     Active Substance: ESOMEPRAZOLE
     Indication: DYSPEPSIA
     Dosage: 1XXPER DAG
     Route: 050
     Dates: start: 20190304
  4. METOPROL SUC SANDOZ RETARD    50 MGMETOPROLOLSUCCINAAT SANDOZ RET [Concomitant]
     Indication: PRODUCT USED FOR UNKNOWN INDICATION
     Dosage: 1 TABLET  S MORGENS: 8.00 UUR
     Route: 065
  5. ASCAL CARDIO BRISPER 100 MGASCAL CARDIO BRISPER BRUISTABLET 100MG [Concomitant]
     Indication: PRODUCT USED FOR UNKNOWN INDICATION
     Dosage: 1 TABLET  S MORGENS: 8.00 UUR
     Route: 065
  6. METFORMINE HCI 550MGMETFORMINE TABLET   500MG [Concomitant]
     Indication: PRODUCT USED FOR UNKNOWN INDICATION
     Dosage: 1 TABLET NA HET ETEN S MORGENS: 8.00 UUR
     Route: 065
     Dates: start: 20170421
  7. LORMETAZEPAM APOT 2. MGLORMETAZEPAM APOTEX TABLET 2MGLORMETAZEPAM T [Concomitant]
     Indication: PRODUCT USED FOR UNKNOWN INDICATION
     Dosage: S AVONDS  2000 UUR
     Route: 065
  8. VITAMINE D COLECALCIFEROL [Concomitant]
     Indication: PRODUCT USED FOR UNKNOWN INDICATION
     Dosage: 1TABLET  S MORGENS: 8.00 UUR
     Route: 065
  9. LOSARTANKALIUM ACCORD 100 MGLOSARTAN KALIUM ACCORD TABLET OMHULD 10 [Concomitant]
     Indication: PRODUCT USED FOR UNKNOWN INDICATION
     Dosage: 1 TABLET S MIDDAGS : 1200 UUR
     Route: 065
  10. PRALUENT  75MG/ML PEN INJVLSPRALUENT INJVLST  75MG/ML PEN 1MLALIROC [Concomitant]
     Indication: PRODUCT USED FOR UNKNOWN INDICATION
     Dosage: EEN KEER IN DE DRIE WEKEN
     Route: 065
  11. EZETROL 10 MGEZETROL TABLET 10MGEZETIMIB TABLET 10MG [Concomitant]
     Indication: PRODUCT USED FOR UNKNOWN INDICATION
     Dosage: 1 TABLET  S MORGENS: 8.00 UUR
     Route: 065
     Dates: start: 20180905

REACTIONS (3)
  - Headache [Not Recovered/Not Resolved]
  - Therapeutic response unexpected [Not Recovered/Not Resolved]
  - Blood pressure increased [Not Recovered/Not Resolved]

NARRATIVE: CASE EVENT DATE: 20190327
